FAERS Safety Report 19514648 (Version 3)
Quarter: 2023Q4

REPORT INFORMATION
  Report Type: Spontaneous
  Country: US (occurrence: US)
  Receive Date: 20210709
  Receipt Date: 20231027
  Transmission Date: 20240109
  Serious: No
  Sender: FDA-Public Use
  Company Number: US-AVEO ONCOLOGY-2021-AVEO-US003303

PATIENT

DRUGS (13)
  1. FOTIVDA [Suspect]
     Active Substance: TIVOZANIB HYDROCHLORIDE
     Indication: Renal cell carcinoma
     Dosage: 1.34 MG
     Dates: start: 20210417
  2. DIAZEPAM [Concomitant]
     Active Substance: DIAZEPAM
  3. ELIQUIS [Concomitant]
     Active Substance: APIXABAN
  4. ERGOCALCIFEROL [Concomitant]
     Active Substance: ERGOCALCIFEROL
  5. LEVETIRACETAM [Concomitant]
     Active Substance: LEVETIRACETAM
  6. LOPERAMIDE HYDROCHLORIDE [Concomitant]
     Active Substance: LOPERAMIDE HYDROCHLORIDE
  7. METFORMIN [Concomitant]
     Active Substance: METFORMIN HYDROCHLORIDE
  8. OMEPRAZOLE [Concomitant]
     Active Substance: OMEPRAZOLE
  9. ONDANSETRON [Concomitant]
     Active Substance: ONDANSETRON
  10. SYNTHROID [Concomitant]
     Active Substance: LEVOTHYROXINE SODIUM
  11. ULORIC [Concomitant]
     Active Substance: FEBUXOSTAT
  12. KLOR-CON [Concomitant]
     Active Substance: POTASSIUM CHLORIDE
  13. VITAMINS [Concomitant]
     Active Substance: VITAMINS

REACTIONS (1)
  - Fatigue [Not Recovered/Not Resolved]

NARRATIVE: CASE EVENT DATE: 20210419
